FAERS Safety Report 4925194-0 (Version None)
Quarter: 2006Q1

REPORT INFORMATION
  Report Type: 
  Country: None (occurrence: None)
  Receive Date: 20060228
  Receipt Date: 20060118
  Transmission Date: 20060701
  Serious: No
  Sender: FDA-Public Use
  Company Number: US-GLAXOSMITHKLINE-A0589870A

PATIENT
  Age: 74 Year
  Sex: Male

DRUGS (3)
  1. AVODART [Suspect]
     Indication: BENIGN PROSTATIC HYPERPLASIA
     Dosage: .5MG PER DAY
     Route: 048
     Dates: start: 20050601
  2. FORADIL [Concomitant]
  3. ALBUTEROL [Concomitant]

REACTIONS (2)
  - ORAL PAIN [None]
  - PHARYNGOLARYNGEAL PAIN [None]
